FAERS Safety Report 6762197-8 (Version None)
Quarter: 2010Q2

REPORT INFORMATION
  Report Type: 
  Country: None (occurrence: None)
  Receive Date: 20100609
  Receipt Date: 20100412
  Transmission Date: 20101027
  Serious: No
  Sender: FDA-Public Use
  Company Number: US-KINGPHARMUSA00001-K201000439

PATIENT
  Sex: Male
  Weight: 104.31 kg

DRUGS (5)
  1. EMBEDA [Suspect]
     Dosage: 20 MG, BID
     Dates: start: 20100402, end: 20100410
  2. NEURONTIN [Concomitant]
     Dosage: 300 MG, 2 Q AM, 1 Q AFTERNOON AND 2 Q PM
  3. SOMA [Concomitant]
     Dosage: 350 MG, BID
  4. NEXIUM [Concomitant]
  5. PERCOCET [Concomitant]
     Dosage: 10/325, QID

REACTIONS (6)
  - AGITATION [None]
  - ANGER [None]
  - MOOD SWINGS [None]
  - NAUSEA [None]
  - PRURITUS [None]
  - RASH [None]
